FAERS Safety Report 17317979 (Version 1)
Quarter: 2020Q1

REPORT INFORMATION
  Report Type: Spontaneous
  Country: US (occurrence: US)
  Receive Date: 20200124
  Receipt Date: 20200124
  Transmission Date: 20200409
  Serious: Yes (Other)
  Sender: FDA-Public Use
  Company Number: US-ANIPHARMA-2019-US-014889

PATIENT
  Age: 29 Year
  Sex: Female

DRUGS (7)
  1. METOCLOPRAMIDE. [Suspect]
     Active Substance: METOCLOPRAMIDE
     Dosage: UNK
     Route: 048
     Dates: start: 20160808, end: 20160813
  2. KEPPRA [Concomitant]
     Active Substance: LEVETIRACETAM
     Dosage: UNK
     Route: 048
  3. METOCLOPRAMIDE. [Suspect]
     Active Substance: METOCLOPRAMIDE
     Dosage: 5 MG/ML INJECTION 2 ML 10 MG, IV PUSH, Q8H.
     Route: 042
     Dates: start: 20160724, end: 20160724
  4. REGLAN [Suspect]
     Active Substance: METOCLOPRAMIDE HYDROCHLORIDE
     Indication: NAUSEA
     Dosage: 5 MG, ONE TABS, ORAL, QID, FOR 7 DAYS  AND 10 MG, ONE TABS, ORAL, QID, FOR 3 DAYS
     Route: 048
     Dates: start: 20160722, end: 20160813
  5. ATIVAN [Suspect]
     Active Substance: LORAZEPAM
     Dosage: 2MG
     Route: 065
     Dates: start: 20160722, end: 20160722
  6. KEPPRA [Suspect]
     Active Substance: LEVETIRACETAM
     Dosage: 1500MG
     Route: 042
     Dates: start: 20160722, end: 20160722
  7. ZOFRAN [Suspect]
     Active Substance: ONDANSETRON HYDROCHLORIDE
     Dosage: 5MG
     Route: 050
     Dates: start: 20160724, end: 20160724

REACTIONS (1)
  - Tardive dyskinesia [Unknown]

NARRATIVE: CASE EVENT DATE: 20160812
